FAERS Safety Report 12352815 (Version 2)
Quarter: 2016Q3

REPORT INFORMATION
  Report Type: Spontaneous
  Country: AR (occurrence: AR)
  Receive Date: 20160510
  Receipt Date: 20160819
  Transmission Date: 20161109
  Serious: Yes (Hospitalization, Other)
  Sender: FDA-Public Use
  Company Number: AR-TAKEDA-2016MPI003889

PATIENT
  Age: 60 Year
  Sex: Female
  Weight: 53 kg

DRUGS (23)
  1. VELCADE [Suspect]
     Active Substance: BORTEZOMIB
     Dosage: 1.95 MG, UNK
     Route: 058
     Dates: start: 20160418
  2. MELPHALAN [Suspect]
     Active Substance: MELPHALAN
     Dosage: 14 MG, UNK
     Route: 048
     Dates: start: 20160419, end: 20160420
  3. MELPHALAN [Suspect]
     Active Substance: MELPHALAN
     Indication: PLASMA CELL MYELOMA
     Dosage: 14 MG, UNK
     Route: 048
     Dates: start: 20160229, end: 20160412
  4. ACICLOVIR [Concomitant]
     Active Substance: ACYCLOVIR
     Indication: ANTIVIRAL PROPHYLAXIS
     Route: 048
     Dates: start: 20160229
  5. PREDNISONE. [Suspect]
     Active Substance: PREDNISONE
     Indication: PLASMA CELL MYELOMA
     Dosage: 90 MG, UNK
     Route: 048
     Dates: start: 20160229, end: 20160412
  6. ATORVASTATIN [Concomitant]
     Active Substance: ATORVASTATIN
     Indication: DYSLIPIDAEMIA
     Dosage: 10 MG, UNK
     Route: 048
     Dates: start: 201103
  7. BACTRIM [Concomitant]
     Active Substance: SULFAMETHOXAZOLE\TRIMETHOPRIM
     Indication: INFECTION PROPHYLAXIS
     Dosage: UNK
     Route: 048
     Dates: start: 20160229
  8. NEUPOGEN [Concomitant]
     Active Substance: FILGRASTIM
     Indication: PROPHYLAXIS
     Dosage: 300 ?G
     Route: 058
     Dates: start: 20160411
  9. NEUPOGEN [Concomitant]
     Active Substance: FILGRASTIM
     Dosage: 300 ?G, UNK
     Route: 058
     Dates: start: 20160328
  10. PREDNISONE. [Suspect]
     Active Substance: PREDNISONE
     Dosage: 90 MG, UNK
     Route: 048
     Dates: start: 20160419, end: 20160420
  11. FLUCONAZOL [Concomitant]
     Active Substance: FLUCONAZOLE
     Indication: ANTIFUNGAL PROPHYLAXIS
     Route: 048
     Dates: start: 20160229
  12. ALPRAZOLAM. [Concomitant]
     Active Substance: ALPRAZOLAM
     Indication: INSOMNIA
     Dosage: 0.5 MG, UNK
     Route: 048
     Dates: start: 201509
  13. RAQUIFEROL [Concomitant]
     Indication: OSTEOPOROSIS PROPHYLAXIS
     Dosage: UNK
     Route: 048
     Dates: start: 20160229
  14. NEUPOGEN [Concomitant]
     Active Substance: FILGRASTIM
     Indication: NEUTROPENIA
     Dosage: 300 ?G, UNK
     Route: 042
     Dates: start: 20160416, end: 20160416
  15. ZOMETA [Concomitant]
     Active Substance: ZOLEDRONIC ACID
     Indication: OSTEOPOROSIS PROPHYLAXIS
     Dosage: 4 MG, UNK
     Route: 042
     Dates: start: 20160303
  16. ULTIBRO [Concomitant]
     Active Substance: GLYCOPYRRONIUM\INDACATEROL
     Indication: CHRONIC OBSTRUCTIVE PULMONARY DISEASE
     Dosage: UNK UNK, BID
     Route: 048
     Dates: start: 201509
  17. PANTOPRAZOL [Concomitant]
     Active Substance: PANTOPRAZOLE SODIUM
     Indication: GASTRITIS PROPHYLAXIS
     Dosage: 40 MG, 2/WEEK
     Route: 048
     Dates: start: 201509
  18. VELCADE [Suspect]
     Active Substance: BORTEZOMIB
     Indication: PLASMA CELL MYELOMA
     Dosage: 1.95 MG, UNK
     Route: 058
     Dates: start: 20160229, end: 20160411
  19. LACTULOSA [Concomitant]
     Active Substance: LACTULOSE
     Indication: CONSTIPATION PROPHYLAXIS
     Route: 048
     Dates: start: 20160314
  20. PARACETAMOL [Concomitant]
     Active Substance: ACETAMINOPHEN
     Indication: PYREXIA
     Route: 042
     Dates: start: 20160413, end: 20160415
  21. PIPERACILLIN/TAZOBACTAM [Concomitant]
     Active Substance: PIPERACILLIN SODIUM\TAZOBACTAM SODIUM
     Indication: PYREXIA
     Route: 042
     Dates: start: 20160413, end: 20160418
  22. NEUPOGEN [Concomitant]
     Active Substance: FILGRASTIM
     Dosage: 300 ?G, 1/WEEK
     Route: 058
     Dates: start: 20160411
  23. NEUPOGEN [Concomitant]
     Active Substance: FILGRASTIM
     Dosage: 300 ?G, UNK
     Route: 058
     Dates: start: 20160328

REACTIONS (3)
  - Fluid overload [Unknown]
  - Pyrexia [Recovered/Resolved]
  - Neutropenia [Unknown]

NARRATIVE: CASE EVENT DATE: 20160328
